FAERS Safety Report 4821602-4 (Version None)
Quarter: 2005Q4

REPORT INFORMATION
  Report Type: 
  Country: None (occurrence: None)
  Receive Date: 20051103
  Receipt Date: 20051103
  Transmission Date: 20060501
  Serious: No
  Sender: FDA-Public Use
  Company Number: None

PATIENT
  Age: 59 Year
  Sex: Male
  Weight: 56.246 kg

DRUGS (9)
  1. WELLBUTRIN XL [Suspect]
     Indication: DEPRESSION
     Dosage: 150 MG PO QAM
     Route: 048
  2. ATROVENT [Concomitant]
  3. RISPERDAL [Concomitant]
  4. PROTONIX [Concomitant]
  5. PROVENTIL [Concomitant]
  6. ASPIRIN [Concomitant]
  7. DILTIAZEM [Concomitant]
  8. NICOTINE [Concomitant]
  9. MULTI-VITAMIN [Concomitant]

REACTIONS (1)
  - RASH [None]
